FAERS Safety Report 4987369-4 (Version None)
Quarter: 2006Q2

REPORT INFORMATION
  Report Type: 
  Country: None (occurrence: None)
  Receive Date: 20060428
  Receipt Date: 20060428
  Transmission Date: 20061013
  Serious: No
  Sender: FDA-Public Use
  Company Number: None

PATIENT

DRUGS (2)
  1. PREVACID [Suspect]
     Indication: ABDOMINAL PAIN
     Dosage: 1/2 TAB QD PO
     Route: 048
  2. PREVACID [Suspect]
     Indication: WEIGHT DECREASED
     Dosage: 1/2 TAB QD PO
     Route: 048

REACTIONS (1)
  - THERAPEUTIC RESPONSE UNEXPECTED WITH DRUG SUBSTITUTION [None]
